FAERS Safety Report 25402596 (Version 1)
Quarter: 2025Q2

REPORT INFORMATION
  Report Type: Spontaneous
  Country: CA (occurrence: CA)
  Receive Date: 20250605
  Receipt Date: 20250605
  Transmission Date: 20250716
  Serious: Yes (Death)
  Sender: MYLAN
  Company Number: CA-MYLANLABS-2025M1047375

PATIENT
  Age: 43 Year
  Sex: Female

DRUGS (40)
  1. PREGABALIN [Suspect]
     Active Substance: PREGABALIN
     Indication: Product used for unknown indication
  2. PREGABALIN [Suspect]
     Active Substance: PREGABALIN
     Route: 065
  3. PREGABALIN [Suspect]
     Active Substance: PREGABALIN
     Route: 065
  4. PREGABALIN [Suspect]
     Active Substance: PREGABALIN
  5. SERTRALINE [Suspect]
     Active Substance: SERTRALINE HYDROCHLORIDE
     Indication: Product used for unknown indication
  6. SERTRALINE [Suspect]
     Active Substance: SERTRALINE HYDROCHLORIDE
     Route: 065
  7. SERTRALINE [Suspect]
     Active Substance: SERTRALINE HYDROCHLORIDE
     Route: 065
  8. SERTRALINE [Suspect]
     Active Substance: SERTRALINE HYDROCHLORIDE
  9. ACETAMINOPHEN [Suspect]
     Active Substance: ACETAMINOPHEN
     Indication: Product used for unknown indication
  10. ACETAMINOPHEN [Suspect]
     Active Substance: ACETAMINOPHEN
     Route: 065
  11. ACETAMINOPHEN [Suspect]
     Active Substance: ACETAMINOPHEN
     Route: 065
  12. ACETAMINOPHEN [Suspect]
     Active Substance: ACETAMINOPHEN
  13. CYCLOBENZAPRINE [Suspect]
     Active Substance: CYCLOBENZAPRINE
     Indication: Product used for unknown indication
  14. CYCLOBENZAPRINE [Suspect]
     Active Substance: CYCLOBENZAPRINE
     Route: 065
  15. CYCLOBENZAPRINE [Suspect]
     Active Substance: CYCLOBENZAPRINE
     Route: 065
  16. CYCLOBENZAPRINE [Suspect]
     Active Substance: CYCLOBENZAPRINE
  17. LORAZEPAM [Suspect]
     Active Substance: LORAZEPAM
     Indication: Product used for unknown indication
  18. LORAZEPAM [Suspect]
     Active Substance: LORAZEPAM
     Route: 065
  19. LORAZEPAM [Suspect]
     Active Substance: LORAZEPAM
     Route: 065
  20. LORAZEPAM [Suspect]
     Active Substance: LORAZEPAM
  21. METHADOSE SUGAR-FREE [Suspect]
     Active Substance: METHADONE HYDROCHLORIDE
     Indication: Drug withdrawal maintenance therapy
     Dosage: 50 MILLIGRAM, QD (1 EVERY 1 DAYS)
  22. METHADOSE SUGAR-FREE [Suspect]
     Active Substance: METHADONE HYDROCHLORIDE
     Dosage: 50 MILLIGRAM, QD (1 EVERY 1 DAYS)
     Route: 065
  23. METHADOSE SUGAR-FREE [Suspect]
     Active Substance: METHADONE HYDROCHLORIDE
     Dosage: 50 MILLIGRAM, QD (1 EVERY 1 DAYS)
     Route: 065
  24. METHADOSE SUGAR-FREE [Suspect]
     Active Substance: METHADONE HYDROCHLORIDE
     Dosage: 50 MILLIGRAM, QD (1 EVERY 1 DAYS)
  25. METHAMPHETAMINE [Suspect]
     Active Substance: METHAMPHETAMINE
     Indication: Product used for unknown indication
  26. METHAMPHETAMINE [Suspect]
     Active Substance: METHAMPHETAMINE
     Route: 065
  27. METHAMPHETAMINE [Suspect]
     Active Substance: METHAMPHETAMINE
     Route: 065
  28. METHAMPHETAMINE [Suspect]
     Active Substance: METHAMPHETAMINE
  29. NAPROXEN [Suspect]
     Active Substance: NAPROXEN
     Indication: Product used for unknown indication
  30. NAPROXEN [Suspect]
     Active Substance: NAPROXEN
     Route: 065
  31. NAPROXEN [Suspect]
     Active Substance: NAPROXEN
     Route: 065
  32. NAPROXEN [Suspect]
     Active Substance: NAPROXEN
  33. QUETIAPINE [Suspect]
     Active Substance: QUETIAPINE
     Indication: Product used for unknown indication
  34. QUETIAPINE [Suspect]
     Active Substance: QUETIAPINE
     Route: 065
  35. QUETIAPINE [Suspect]
     Active Substance: QUETIAPINE
     Route: 065
  36. QUETIAPINE [Suspect]
     Active Substance: QUETIAPINE
  37. TEMAZEPAM [Suspect]
     Active Substance: TEMAZEPAM
     Indication: Product used for unknown indication
  38. TEMAZEPAM [Suspect]
     Active Substance: TEMAZEPAM
     Route: 065
  39. TEMAZEPAM [Suspect]
     Active Substance: TEMAZEPAM
     Route: 065
  40. TEMAZEPAM [Suspect]
     Active Substance: TEMAZEPAM

REACTIONS (4)
  - Accidental poisoning [Fatal]
  - Arteriosclerosis coronary artery [Fatal]
  - Aspiration [Fatal]
  - Substance use [Fatal]
